FAERS Safety Report 8333412-4 (Version None)
Quarter: 2012Q2

REPORT INFORMATION
  Report Type: 
  Country: None (occurrence: None)
  Receive Date: 20120503
  Receipt Date: 20120427
  Transmission Date: 20120825
  Serious: Yes (Other)
  Sender: FDA-Public Use
  Company Number: BR-PFIZER INC-2012105175

PATIENT
  Age: 70 Year
  Sex: Female

DRUGS (1)
  1. XALATAN [Suspect]
     Indication: GLAUCOMA
     Dosage: 3.0 UG, 1X/DAY (ONE DROP IN EACH EYE 1X/DAY)
     Route: 047
     Dates: start: 20101026

REACTIONS (1)
  - CATARACT [None]
